FAERS Safety Report 10966447 (Version 2)
Quarter: 2015Q2

REPORT INFORMATION
  Report Type: Spontaneous
  Country: CA (occurrence: CA)
  Receive Date: 20150330
  Receipt Date: 20150611
  Transmission Date: 20150821
  Serious: Yes (Other)
  Sender: FDA-Public Use
  Company Number: CA-JNJFOC-20150315489

PATIENT
  Age: 62 Year
  Sex: Female
  Weight: 113 kg

DRUGS (5)
  1. LORAZEPAM. [Concomitant]
     Active Substance: LORAZEPAM
     Indication: AGGRESSION
     Route: 048
     Dates: start: 201412, end: 20150505
  2. LOXAPINE. [Concomitant]
     Active Substance: LOXAPINE
     Indication: AGITATION
     Route: 048
     Dates: start: 201412, end: 20150505
  3. INVEGA SUSTENNA [Suspect]
     Active Substance: PALIPERIDONE PALMITATE
     Indication: ABNORMAL BEHAVIOUR
     Route: 030
     Dates: start: 201412, end: 20150320
  4. INVEGA SUSTENNA [Suspect]
     Active Substance: PALIPERIDONE PALMITATE
     Indication: PERSONALITY DISORDER
     Route: 030
     Dates: start: 201412, end: 20150320
  5. DIPHENHYDRAMINE [Concomitant]
     Active Substance: DIPHENHYDRAMINE
     Indication: EXTRAPYRAMIDAL DISORDER
     Route: 048
     Dates: start: 201412, end: 20150505

REACTIONS (2)
  - Suicidal ideation [Recovered/Resolved]
  - Depression [Recovered/Resolved]

NARRATIVE: CASE EVENT DATE: 201501
